FAERS Safety Report 6620329-6 (Version None)
Quarter: 2010Q1

REPORT INFORMATION
  Report Type: 
  Country: None (occurrence: None)
  Receive Date: 20100309
  Receipt Date: 20100224
  Transmission Date: 20100710
  Serious: Yes (Other)
  Sender: FDA-Public Use
  Company Number: AU-PFIZER INC-2010023566

PATIENT
  Sex: Female

DRUGS (1)
  1. DILANTIN [Suspect]
     Dosage: 100 MG, 3X/DAY

REACTIONS (3)
  - DIZZINESS [None]
  - PALPITATIONS [None]
  - PANIC ATTACK [None]
